FAERS Safety Report 13625796 (Version 1)
Quarter: 2017Q2

REPORT INFORMATION
  Report Type: Spontaneous
  Country: US (occurrence: US)
  Receive Date: 20170607
  Receipt Date: 20170607
  Transmission Date: 20170830
  Serious: Yes (Life-Threatening, Hospitalization)
  Sender: FDA-Public Use
  Company Number: None

PATIENT
  Age: 63 Year
  Sex: Male
  Weight: 83.63 kg

DRUGS (1)
  1. GADOBUTROL [Suspect]
     Active Substance: GADOBUTROL
     Indication: IMAGING PROCEDURE
     Route: 042
     Dates: start: 20170515, end: 20170515

REACTIONS (10)
  - Vomiting [None]
  - Urticaria [None]
  - Contrast media allergy [None]
  - Hypotension [None]
  - Dysphagia [None]
  - Dysphonia [None]
  - Nausea [None]
  - Pruritus [None]
  - Flushing [None]
  - Anaphylactic reaction [None]

NARRATIVE: CASE EVENT DATE: 20170515
